FAERS Safety Report 4421685-X (Version None)
Quarter: 2004Q3

REPORT INFORMATION
  Report Type: 
  Country: None (occurrence: None)
  Receive Date: 20040804
  Receipt Date: 20040726
  Transmission Date: 20050211
  Serious: Yes (Death)
  Sender: FDA-Public Use
  Company Number: 2004-07-1443

PATIENT
  Age: 74 Year
  Sex: Female

DRUGS (2)
  1. DIPROSPAN (BETAMETHASONE SODIUM PHOSPHATE / DIPROPIONA  ^LIKE CELESTON [Suspect]
     Indication: RASH
  2. PENICILLIN G [Suspect]
     Indication: PNEUMONIA
     Dosage: INTRAMUSCULAR
     Route: 030

REACTIONS (2)
  - CONVULSION [None]
  - RASH GENERALISED [None]
